FAERS Safety Report 5957214-9 (Version None)
Quarter: 2008Q4

REPORT INFORMATION
  Report Type: 
  Country: None (occurrence: None)
  Receive Date: 20081117
  Receipt Date: 20081117
  Transmission Date: 20090506
  Serious: Yes (Other)
  Sender: FDA-Public Use
  Company Number: None

PATIENT
  Age: 57 Year
  Sex: Male
  Weight: 112.9457 kg

DRUGS (2)
  1. TAGAMET [Suspect]
     Indication: GASTROOESOPHAGEAL REFLUX DISEASE
     Dosage: 200MG QID
     Dates: start: 20020101, end: 20030101
  2. REGLAN [Suspect]
     Dosage: 10MG QID
     Dates: start: 20030101, end: 20030101

REACTIONS (1)
  - GASTROOESOPHAGEAL REFLUX DISEASE [None]
